FAERS Safety Report 8308607-6 (Version None)
Quarter: 2012Q2

REPORT INFORMATION
  Report Type: 
  Country: None (occurrence: None)
  Receive Date: 20120424
  Receipt Date: 20120417
  Transmission Date: 20120825
  Serious: Yes (Other)
  Sender: FDA-Public Use
  Company Number: US-ROCHE-552233

PATIENT
  Sex: Female
  Weight: 54.4 kg

DRUGS (1)
  1. ACCUTANE [Suspect]
     Indication: ACNE
     Dosage: THE PATIENT TOOK ACCUTANE FOR 4 MONTHS AS PER MEDICAL RECORDS.
     Route: 065
     Dates: start: 19840409, end: 19840804

REACTIONS (11)
  - SUICIDAL IDEATION [None]
  - PROCTITIS ULCERATIVE [None]
  - SELF-INJURIOUS IDEATION [None]
  - CROHN'S DISEASE [None]
  - DEPRESSION [None]
  - ANAEMIA [None]
  - COLITIS ULCERATIVE [None]
  - INFLAMMATORY BOWEL DISEASE [None]
  - COLITIS [None]
  - ANAL FISSURE [None]
  - PANIC DISORDER [None]
